FAERS Safety Report 5382457-5 (Version None)
Quarter: 2007Q3

REPORT INFORMATION
  Report Type: 
  Country: None (occurrence: None)
  Receive Date: 20070705
  Receipt Date: 20060818
  Transmission Date: 20080115
  Serious: Yes (Hospitalization)
  Sender: FDA-Public Use
  Company Number: WAES 0608USA04470

PATIENT
  Sex: Female
  Weight: 49.8957 kg

DRUGS (2)
  1. HYZAAR [Suspect]
     Indication: HYPERTENSION
     Dosage: 100/25 MG, DAILY; PO
     Route: 048
     Dates: start: 20060801, end: 20060816
  2. MORPHINE [Concomitant]

REACTIONS (1)
  - PANCREATITIS [None]
